FAERS Safety Report 22139192 (Version 1)
Quarter: 2023Q1

REPORT INFORMATION
  Report Type: Other
  Country: US (occurrence: None)
  Receive Date: 20230327
  Receipt Date: 20230327
  Transmission Date: 20230417
  Serious: Yes (Other)
  Sender: FDA-Public Use
  Company Number: US-ROCHE-3315358

PATIENT
  Age: 43 Year
  Sex: Female
  Weight: 63.560 kg

DRUGS (5)
  1. OCREVUS [Suspect]
     Active Substance: OCRELIZUMAB
     Indication: Relapsing multiple sclerosis
     Dosage: PRESCRIBED AS 300 MG INFUSE 300MG IV DAY 1 AND DAY 15, 600 INFUSE 600MG IV Q 6 MONTHS
     Route: 042
     Dates: start: 20200131
  2. OCREVUS [Suspect]
     Active Substance: OCRELIZUMAB
     Route: 042
     Dates: start: 20230131
  3. TECFIDERA [Concomitant]
     Active Substance: DIMETHYL FUMARATE
  4. SPIRONOLACTONE [Concomitant]
     Active Substance: SPIRONOLACTONE
  5. ADVAIR HFA [Concomitant]
     Active Substance: FLUTICASONE PROPIONATE\SALMETEROL XINAFOATE

REACTIONS (3)
  - Herpes zoster [Unknown]
  - Asthma [Unknown]
  - Respiratory disorder [Unknown]

NARRATIVE: CASE EVENT DATE: 20200301
